FAERS Safety Report 8444193-8 (Version None)
Quarter: 2012Q2

REPORT INFORMATION
  Report Type: 
  Country: None (occurrence: None)
  Receive Date: 20120323
  Receipt Date: 20110608
  Transmission Date: 20120825
  Serious: Yes (Hospitalization)
  Sender: FDA-Public Use
  Company Number: 163-21880-11052865

PATIENT
  Age: 57 Year
  Sex: Male

DRUGS (10)
  1. ASPIRIN [Concomitant]
  2. REVLIMID [Suspect]
     Indication: MULTIPLE MYELOMA
     Dosage: 25 MG, 1 IN 1 D, PO
     Route: 048
     Dates: start: 20101227
  3. CENTRUM (CENTRUM) [Concomitant]
  4. FUROSEMIDE [Concomitant]
  5. KLOR-CON (POTASSIUM CHRLORIDE) [Concomitant]
  6. ATENOLOL [Concomitant]
  7. LISINOPRIL [Concomitant]
  8. ALBUTEROL SULFATE [Concomitant]
  9. DEXAMETHASONE [Concomitant]
  10. FISH OIL (FISH OIL) [Concomitant]

REACTIONS (1)
  - DEEP VEIN THROMBOSIS [None]
